FAERS Safety Report 9279453 (Version 1)
Quarter: 2013Q2

REPORT INFORMATION
  Report Type: Spontaneous
  Country: GB (occurrence: GB)
  Receive Date: 20130508
  Receipt Date: 20130508
  Transmission Date: 20140414
  Serious: Yes (Hospitalization)
  Sender: FDA-Public Use
  Company Number: GB-B.I. PHARMACEUTICALS,INC./RIDGEFIELD-2013-UK-01085UK

PATIENT
  Sex: 0

DRUGS (1)
  1. SPIRIVA [Suspect]

REACTIONS (2)
  - Condition aggravated [Unknown]
  - Dyspnoea [Unknown]
